FAERS Safety Report 7863082-0 (Version None)
Quarter: 2011Q4

REPORT INFORMATION
  Report Type: 
  Country: None (occurrence: None)
  Receive Date: 20111027
  Receipt Date: 20101124
  Transmission Date: 20120403
  Serious: No
  Sender: FDA-Public Use
  Company Number: US-AMGEN-USASP2010006519

PATIENT
  Sex: Female

DRUGS (2)
  1. ENBREL [Suspect]
     Indication: RHEUMATOID ARTHRITIS
     Dosage: 50 MG, QWK
     Dates: start: 20090501
  2. TREXALL [Concomitant]
     Dosage: 6 MG, QWK
     Dates: start: 20081101

REACTIONS (4)
  - ARTHRALGIA [None]
  - ALOPECIA [None]
  - RHEUMATOID ARTHRITIS [None]
  - NEPHROLITHIASIS [None]
